FAERS Safety Report 5505032-8 (Version None)
Quarter: 2007Q4

REPORT INFORMATION
  Report Type: 
  Country: None (occurrence: None)
  Receive Date: 20071102
  Receipt Date: 20071023
  Transmission Date: 20080405
  Serious: Yes (Hospitalization)
  Sender: FDA-Public Use
  Company Number: GB-ROCHE-515244

PATIENT
  Age: 51 Year
  Sex: Female
  Weight: 95 kg

DRUGS (5)
  1. ORLISTAT [Suspect]
     Indication: OBESITY
     Route: 048
     Dates: start: 20050301, end: 20050331
  2. ORLISTAT [Suspect]
     Route: 048
     Dates: start: 20070329, end: 20070807
  3. EZETIMIBE [Concomitant]
     Route: 048
     Dates: start: 20041208
  4. ATORVASTATIN CALCIUM [Concomitant]
     Route: 048
     Dates: start: 20040419
  5. MEBEVERINE [Concomitant]
     Indication: IRRITABLE BOWEL SYNDROME
     Route: 048
     Dates: start: 20010905

REACTIONS (1)
  - DIVERTICULITIS [None]
